FAERS Safety Report 5936104-1 (Version None)
Quarter: 2008Q4

REPORT INFORMATION
  Report Type: 
  Country: None (occurrence: None)
  Receive Date: 20081030
  Receipt Date: 20081021
  Transmission Date: 20090506
  Serious: Yes (Other)
  Sender: FDA-Public Use
  Company Number: PHHY2008GB26166

PATIENT

DRUGS (1)
  1. FEMARA [Suspect]

REACTIONS (2)
  - GASTROINTESTINAL SURGERY [None]
  - JEJUNOSTOMY [None]
